FAERS Safety Report 5761947-7 (Version None)
Quarter: 2008Q2

REPORT INFORMATION
  Report Type: 
  Country: None (occurrence: None)
  Receive Date: 20080603
  Receipt Date: 20080528
  Transmission Date: 20081010
  Serious: Yes (Hospitalization, Other)
  Sender: FDA-Public Use
  Company Number: 2008SP009302

PATIENT
  Sex: Male

DRUGS (2)
  1. SARASAR (LONAFARNIB) [Suspect]
     Indication: GLIOBLASTOMA MULTIFORME
     Dosage: 200 MG;QD;PO
     Route: 048
     Dates: start: 20070102, end: 20080511
  2. TEMOZOLOMIDE [Suspect]
     Indication: GLIOBLASTOMA MULTIFORME
     Dosage: 310 MG;QD;PO
     Route: 048
     Dates: start: 20070102, end: 20080511

REACTIONS (5)
  - ABDOMINAL PAIN UPPER [None]
  - BLOOD AMYLASE INCREASED [None]
  - HERPES DERMATITIS [None]
  - LIPASE INCREASED [None]
  - NAUSEA [None]
